FAERS Safety Report 10419258 (Version 3)
Quarter: 2016Q3

REPORT INFORMATION
  Report Type: Spontaneous
  Country: BR (occurrence: BR)
  Receive Date: 20140829
  Receipt Date: 20160831
  Transmission Date: 20161109
  Serious: Yes (Hospitalization)
  Sender: FDA-Public Use
  Company Number: BR-GLAXOSMITHKLINE-B1024805A

PATIENT
  Sex: Male
  Weight: 87 kg

DRUGS (6)
  1. COMBODART [Suspect]
     Active Substance: DUTASTERIDE\TAMSULOSIN
     Dosage: 1 DF, QD (CAPSULE)
     Route: 048
  2. COMBODART [Suspect]
     Active Substance: DUTASTERIDE\TAMSULOSIN
     Indication: PROSTATIC ATROPHY
     Dosage: 1 DF, QD (CAPSULE)
     Route: 048
  3. COMBODART [Suspect]
     Active Substance: DUTASTERIDE\TAMSULOSIN
     Dosage: 1 DF, QD
     Route: 048
  4. LOSARTAN. [Concomitant]
     Active Substance: LOSARTAN
     Indication: BLOOD PRESSURE MEASUREMENT
     Route: 048
     Dates: start: 2009
  5. COMBODART [Suspect]
     Active Substance: DUTASTERIDE\TAMSULOSIN
     Dosage: 1 DF, QD (CAPSULE)
     Route: 048
  6. COMBODART [Suspect]
     Active Substance: DUTASTERIDE\TAMSULOSIN
     Indication: PROSTATOMEGALY
     Dosage: 0.5 MG DUTASTERIDE/0.4 MG TAMSULOSIN 1 CAPSULE EVERY DAY, INCREASED TO 2 CAPSULES EVERY DAY THE[...]
     Route: 048

REACTIONS (7)
  - Bladder pain [Not Recovered/Not Resolved]
  - Cardiac disorder [Unknown]
  - Drug ineffective [Unknown]
  - Product quality issue [Unknown]
  - Pain [Unknown]
  - Dysuria [Unknown]
  - Overdose [Recovered/Resolved]
